FAERS Safety Report 12230028 (Version 1)
Quarter: 2016Q1

REPORT INFORMATION
  Report Type: Spontaneous
  Country: None (occurrence: None)
  Receive Date: 20160331
  Receipt Date: 20160331
  Transmission Date: 20160526
  Serious: No
  Sender: FDA-Public Use
  Company Number: None

PATIENT
  Sex: Male
  Weight: 80.6 kg

DRUGS (5)
  1. COLESEVELAM (WELCHOL) [Concomitant]
  2. PRALUENT [Suspect]
     Active Substance: ALIROCUMAB
     Route: 058
  3. ASPIRIN EC [Concomitant]
     Active Substance: ASPIRIN
  4. MOMETASONE FUROATE (NASONEX NAS) [Concomitant]
  5. AMBIEN [Concomitant]
     Active Substance: ZOLPIDEM TARTRATE

REACTIONS (4)
  - Sleep disorder [None]
  - Discomfort [None]
  - Myalgia intercostal [None]
  - Abdominal pain [None]
